FAERS Safety Report 7383294-2 (Version None)
Quarter: 2011Q1

REPORT INFORMATION
  Report Type: 
  Country: None (occurrence: None)
  Receive Date: 20110330
  Receipt Date: 20110215
  Transmission Date: 20110831
  Serious: Yes (Other)
  Sender: FDA-Public Use
  Company Number: CH-PFIZER INC-CH-WYE-H07237108

PATIENT
  Age: 36 Year
  Sex: Female

DRUGS (3)
  1. DAFALGAN [Concomitant]
     Route: 065
  2. RELPAX [Suspect]
     Dosage: 40 MG, SINGLE
     Route: 048
     Dates: start: 20051230, end: 20051230
  3. PANTOZOL [Suspect]
     Indication: GASTROOESOPHAGEAL REFLUX DISEASE
     Dosage: 40 MG, 1X/DAY
     Route: 048
     Dates: start: 20051224, end: 20060107

REACTIONS (2)
  - DRUG EXPOSURE DURING PREGNANCY [None]
  - ABORTION MISSED [None]
